FAERS Safety Report 12541198 (Version 1)
Quarter: 2016Q3

REPORT INFORMATION
  Report Type: Spontaneous
  Country: PL (occurrence: PL)
  Receive Date: 20160708
  Receipt Date: 20160708
  Transmission Date: 20161109
  Serious: Yes (Other)
  Sender: FDA-Public Use
  Company Number: PHHY2016PL090850

PATIENT
  Age: 64 Year

DRUGS (1)
  1. EVEROLIMUS [Suspect]
     Active Substance: EVEROLIMUS
     Indication: RENAL CELL CARCINOMA
     Dosage: 10 MG, QD
     Route: 065
     Dates: start: 20140401

REACTIONS (8)
  - Transaminases increased [Unknown]
  - Blood creatinine increased [Unknown]
  - Skin lesion [Unknown]
  - Malignant neoplasm progression [Unknown]
  - Hepatic lesion [Unknown]
  - Blood cholesterol increased [Unknown]
  - Oedema peripheral [Unknown]
  - Blood triglycerides increased [Unknown]

NARRATIVE: CASE EVENT DATE: 20160329
